FAERS Safety Report 8006363-2 (Version None)
Quarter: 2011Q4

REPORT INFORMATION
  Report Type: 
  Country: None (occurrence: None)
  Receive Date: 20111226
  Receipt Date: 20111217
  Transmission Date: 20120403
  Serious: Yes (Other)
  Sender: FDA-Public Use
  Company Number: PHHY2011BR110207

PATIENT
  Sex: Female

DRUGS (1)
  1. FORMOTEROL FUMARATE [Suspect]

REACTIONS (6)
  - PYREXIA [None]
  - INCREASED BRONCHIAL SECRETION [None]
  - EMPHYSEMA [None]
  - DYSPNOEA [None]
  - INSOMNIA [None]
  - MALAISE [None]
